FAERS Safety Report 15823984 (Version 1)
Quarter: 2019Q1

REPORT INFORMATION
  Report Type: Spontaneous
  Country: SI (occurrence: SI)
  Receive Date: 20190114
  Receipt Date: 20190114
  Transmission Date: 20190417
  Serious: Yes (Hospitalization)
  Sender: FDA-Public Use
  Company Number: PHHY2019SI004505

PATIENT
  Age: 84 Year
  Sex: Female
  Weight: 68 kg

DRUGS (10)
  1. ULTOP [Concomitant]
     Indication: PRODUCT USED FOR UNKNOWN INDICATION
     Dosage: 20 MG, QD ( IN THE MORNING BEFORE EATING)
     Route: 048
  2. EDEMID [Concomitant]
     Active Substance: FUROSEMIDE
     Indication: CARDIAC FAILURE CHRONIC
     Dosage: 20 MG, QD ( 1/2 TBL BEFORE THE MEAL (ON EMPTY STOMACH)
     Route: 048
  3. PRIMOTREN [Suspect]
     Active Substance: SULFAMETHOXAZOLE\TRIMETHOPRIM
     Indication: URINARY TRACT INFECTION
     Dosage: 4 DF, QD ( 80+400 TABLET, 2X2 TBL./DAY)
     Route: 048
     Dates: start: 20180626, end: 20180703
  4. MEDROL [Concomitant]
     Active Substance: METHYLPREDNISOLONE
     Indication: POLYMYALGIA RHEUMATICA
     Dosage: 2 MG, QD ( 1/2 TBL IN THE MORNINGS)
     Route: 048
  5. BONVIVA [Concomitant]
     Active Substance: IBANDRONATE SODIUM
     Indication: OSTEOPOROSIS
     Dosage: 150 MG, QMO
     Route: 048
  6. ENTRESTO [Suspect]
     Active Substance: SACUBITRIL\VALSARTAN
     Indication: MYOCARDIAL ISCHAEMIA
     Dosage: 1 DF, BID ( 49MG/51MG TABLET, 2X1 TBL./DAY)
     Route: 048
     Dates: start: 20171003
  7. BYOL [Concomitant]
     Active Substance: BISOPROLOL
     Indication: HYPERTENSION
     Dosage: 1 DF, BID ( 2X1 TBL./DAY)
     Route: 048
  8. GLURENORM [Concomitant]
     Active Substance: GLIQUIDONE
     Indication: TYPE 2 DIABETES MELLITUS
     Dosage: 30 MG, QD ( 1/2 TBL 2X/DAY )
     Route: 048
  9. ASPIRIN. [Concomitant]
     Active Substance: ASPIRIN
     Indication: MYOCARDIAL ISCHAEMIA
     Dosage: 100 MG, QD ( 1 TBL/DAY, 30 MIN BEFORE LUNCH)
     Route: 048
  10. SORVASTA [Concomitant]
     Active Substance: ROSUVASTATIN CALCIUM
     Indication: HYPERCHOLESTEROLAEMIA
     Dosage: 10 MG, QD ( IN THE EVENING)
     Route: 048

REACTIONS (1)
  - Hyperkalaemia [Recovered/Resolved]

NARRATIVE: CASE EVENT DATE: 20180706
